FAERS Safety Report 10915530 (Version 1)
Quarter: 2015Q1

REPORT INFORMATION
  Report Type: Spontaneous
  Country: US (occurrence: None)
  Receive Date: 20150311
  Receipt Date: 20150311
  Transmission Date: 20150721
  Serious: Yes (Hospitalization)
  Sender: FDA-Public Use
  Company Number: None

PATIENT
  Age: 59 Year
  Sex: Male
  Weight: 69.26 kg

DRUGS (19)
  1. NEXIUM [Concomitant]
     Active Substance: ESOMEPRAZOLE MAGNESIUM
  2. ZINC [Concomitant]
     Active Substance: ZINC\ZINC CHLORIDE
  3. SILDENAFIL. [Concomitant]
     Active Substance: SILDENAFIL
  4. TRAMADOL [Concomitant]
     Active Substance: TRAMADOL
  5. MULTI VITAMIN [Concomitant]
     Active Substance: VITAMINS
  6. OXYCODONE [Concomitant]
     Active Substance: OXYCODONE
  7. AMILORIDE [Concomitant]
     Active Substance: AMILORIDE
  8. ZOFRAN [Concomitant]
     Active Substance: ONDANSETRON HYDROCHLORIDE
  9. TREPROSTIN [Concomitant]
  10. TRAZODONE [Concomitant]
     Active Substance: TRAZODONE HYDROCHLORIDE
  11. XANAX [Concomitant]
     Active Substance: ALPRAZOLAM
  12. RIBAVIRIN 600MG [Suspect]
     Active Substance: RIBAVIRIN
     Indication: HEPATITIS C
     Route: 048
     Dates: start: 20140904, end: 20141224
  13. BUPROPION [Concomitant]
     Active Substance: BUPROPION
  14. LACTULOSE. [Concomitant]
     Active Substance: LACTULOSE
  15. THIAMINE [Concomitant]
     Active Substance: THIAMINE
  16. SOFOSBUVIR 400MG [Suspect]
     Active Substance: SOFOSBUVIR
     Indication: HEPATITIS C
     Route: 048
     Dates: start: 20140904, end: 20141224
  17. LASIX [Concomitant]
     Active Substance: FUROSEMIDE
  18. RIFAXIMIN [Concomitant]
     Active Substance: RIFAXIMIN
  19. REQUIP [Concomitant]
     Active Substance: ROPINIROLE HYDROCHLORIDE

REACTIONS (2)
  - Abdominal pain [None]
  - Anaemia [None]

NARRATIVE: CASE EVENT DATE: 20141120
